FAERS Safety Report 17078749 (Version 2)
Quarter: 2020Q1

REPORT INFORMATION
  Report Type: Report from Study
  Country: US (occurrence: US)
  Receive Date: 20191127
  Receipt Date: 20200117
  Transmission Date: 20200409
  Serious: Yes (Other)
  Sender: FDA-Public Use
  Company Number: US-BEH-2019109610

PATIENT
  Age: 25 Year
  Sex: Female
  Weight: 76.19 kg

DRUGS (3)
  1. RITUXIMAB. [Concomitant]
     Active Substance: RITUXIMAB
  2. ZEMAIRA [Suspect]
     Active Substance: .ALPHA.1-PROTEINASE INHIBITOR HUMAN
     Indication: ALPHA-1 ANTI-TRYPSIN DEFICIENCY
     Dosage: 60.0, QW
     Route: 042
     Dates: start: 2015
  3. CELLCEPT [Concomitant]
     Active Substance: MYCOPHENOLATE MOFETIL\MYCOPHENOLATE MOFETIL HYDROCHLORIDE

REACTIONS (5)
  - Idiopathic intracranial hypertension [Unknown]
  - Headache [Unknown]
  - Cerebral cyst [Unknown]
  - Cerebrovascular stenosis [Unknown]
  - Cerebrospinal fluid circulation disorder [Unknown]
